FAERS Safety Report 14694266 (Version 1)
Quarter: 2018Q1

REPORT INFORMATION
  Report Type: Spontaneous
  Country: FR (occurrence: FR)
  Receive Date: 20180329
  Receipt Date: 20180329
  Transmission Date: 20180509
  Serious: Yes (Hospitalization)
  Sender: FDA-Public Use
  Company Number: FR-BAYER-2018-054367

PATIENT
  Age: 70 Year
  Sex: Male
  Weight: 131.6 kg

DRUGS (13)
  1. CHONDROSULF [Concomitant]
     Active Substance: CHONDROITIN SULFATE (CHICKEN)
     Dosage: 1200 MG, QD
     Route: 048
     Dates: start: 201401
  2. DAFALGAN [Concomitant]
     Active Substance: ACETAMINOPHEN
     Route: 048
  3. VALACICLOVIR HYDROCHLORIDE [Suspect]
     Active Substance: VALACYCLOVIR HYDROCHLORIDE
     Indication: HERPES SIMPLEX
     Dosage: 1000 MG, QD
     Route: 048
     Dates: start: 20180104, end: 20180108
  4. IZILOX [Suspect]
     Active Substance: MOXIFLOXACIN HYDROCHLORIDE
     Dosage: UNK
  5. ESOMEPRAZOLE MAGNESIUM. [Concomitant]
     Active Substance: ESOMEPRAZOLE MAGNESIUM
     Dosage: 40 MG, QD
     Route: 048
     Dates: start: 201707
  6. CARDENSIEL [Concomitant]
     Active Substance: BISOPROLOL FUMARATE
     Dosage: 5 MG, QD
     Route: 048
     Dates: start: 201509
  7. TOBREX [Suspect]
     Active Substance: TOBRAMYCIN
     Dosage: UNK
     Route: 047
  8. KARDEGIC [Concomitant]
     Active Substance: ASPIRIN DL-LYSINE
     Dosage: 75 MG, QD
     Route: 048
     Dates: start: 201401
  9. COVERSYL [Suspect]
     Active Substance: PERINDOPRIL
     Indication: HYPERTENSION
     Dosage: 1.5 DF, UNK
     Route: 048
     Dates: start: 201410, end: 20180201
  10. BIOCALYPTOL-PHOLCODINE (BIOCALYPTOL-PHOLCODINE) (GUAIACOL, PHENOL, CINEOLE, PHOLCODINE, SODIUM CAMSYLATE) [Suspect]
     Active Substance: EUCALYPTOL\GUAIACOL\PHENOL\PHOLCODINE\SODIUM CAMPHORSULFONATE
     Indication: COUGH
     Dosage: 3 DF, QD
     Route: 048
     Dates: start: 20180102
  11. CRESTOR [Concomitant]
     Active Substance: ROSUVASTATIN CALCIUM
     Dosage: 5 MG, QD
     Route: 048
     Dates: start: 201410
  12. NEURONTIN [Concomitant]
     Active Substance: GABAPENTIN
     Dosage: 2400 MG, QD
     Route: 048
     Dates: start: 201410
  13. RHINOFLUIMUCIL [Suspect]
     Active Substance: ACETYLCYSTEINE\BENZALKONIUM CHLORIDE\TUAMINOHEPTANE SULFATE
     Dosage: UNK
     Route: 045

REACTIONS (4)
  - Face oedema [Recovered/Resolved]
  - Eyelid oedema [Recovered/Resolved]
  - Shock [Recovered/Resolved]
  - Erythema [Recovered/Resolved]

NARRATIVE: CASE EVENT DATE: 20180105
